FAERS Safety Report 7352347-7 (Version None)
Quarter: 2011Q1

REPORT INFORMATION
  Report Type: 
  Country: None (occurrence: None)
  Receive Date: 20110309
  Receipt Date: 20110309
  Transmission Date: 20110831
  Serious: Yes (Other)
  Sender: FDA-Public Use
  Company Number: None

PATIENT
  Age: 30 Year
  Sex: Female
  Weight: 60 kg

DRUGS (1)
  1. AVELOX [Suspect]
     Indication: UPPER RESPIRATORY TRACT INFECTION
     Dosage: 400MG DAILY PO
     Route: 048
     Dates: start: 20100419, end: 20100429

REACTIONS (3)
  - VITREOUS FLOATERS [None]
  - VISION BLURRED [None]
  - ARTHRALGIA [None]
